FAERS Safety Report 6039725-3 (Version None)
Quarter: 2009Q1

REPORT INFORMATION
  Report Type: 
  Country: None (occurrence: None)
  Receive Date: 20090116
  Receipt Date: 20090112
  Transmission Date: 20090719
  Serious: Yes (Life-Threatening, Hospitalization, Other)
  Sender: FDA-Public Use
  Company Number: PHHY2008DE24844

PATIENT
  Sex: Male
  Weight: 61 kg

DRUGS (2)
  1. FAMVIR [Suspect]
     Dosage: 250 MG THRICE DAILY
     Route: 048
     Dates: start: 20030101, end: 20081010
  2. MARCUMAR [Concomitant]
     Dosage: UNK

REACTIONS (14)
  - ASPARTATE AMINOTRANSFERASE INCREASED [None]
  - C-REACTIVE PROTEIN INCREASED [None]
  - DRUG INTERACTION [None]
  - ENCEPHALITIS [None]
  - EYE HAEMORRHAGE [None]
  - GRANULOCYTE COUNT DECREASED [None]
  - HAEMOGLOBIN DECREASED [None]
  - PLATELET COUNT DECREASED [None]
  - PNEUMONIA [None]
  - RED BLOOD CELL COUNT DECREASED [None]
  - RED BLOOD CELL SEDIMENTATION RATE INCREASED [None]
  - RETINAL VEIN THROMBOSIS [None]
  - THROMBOSIS [None]
  - VISUAL IMPAIRMENT [None]
